FAERS Safety Report 8397198-X (Version None)
Quarter: 2012Q2

REPORT INFORMATION
  Report Type: 
  Country: None (occurrence: None)
  Receive Date: 20120530
  Receipt Date: 20120521
  Transmission Date: 20120825
  Serious: Yes (Hospitalization)
  Sender: FDA-Public Use
  Company Number: US-MERCK-1111USA02476

PATIENT
  Age: 42 Year
  Sex: Female
  Weight: 79 kg

DRUGS (2)
  1. FOSAMAX [Suspect]
     Indication: HYSTERECTOMY
     Route: 048
     Dates: start: 20010101
  2. FOSAMAX PLUS D [Suspect]
     Indication: HYSTERECTOMY
     Route: 048

REACTIONS (57)
  - PLEURAL EFFUSION [None]
  - ACTIVITIES OF DAILY LIVING IMPAIRED [None]
  - JOINT SWELLING [None]
  - DRUG TOLERANCE [None]
  - TENSION HEADACHE [None]
  - OFF LABEL USE [None]
  - VOMITING [None]
  - ATTENTION DEFICIT/HYPERACTIVITY DISORDER [None]
  - GALLBLADDER DISORDER [None]
  - RENAL CYST [None]
  - SYNCOPE [None]
  - OBSESSIVE-COMPULSIVE DISORDER [None]
  - BACK PAIN [None]
  - HEADACHE [None]
  - NEPHROPATHY [None]
  - PROGESTERONE DECREASED [None]
  - PHOBIA [None]
  - VITAMIN D DEFICIENCY [None]
  - BLOOD PRESSURE DECREASED [None]
  - ANXIETY [None]
  - FAECES PALE [None]
  - ARTHRALGIA [None]
  - CHEST PAIN [None]
  - DIARRHOEA [None]
  - ORAL HERPES [None]
  - CHOLELITHIASIS [None]
  - NAUSEA [None]
  - TOOTH DISORDER [None]
  - HYPOTHYROIDISM [None]
  - TOOTH FRACTURE [None]
  - BONE LESION [None]
  - BLOOD CALCIUM INCREASED [None]
  - COUGH [None]
  - POST-TRAUMATIC STRESS DISORDER [None]
  - NON-ALCOHOLIC STEATOHEPATITIS [None]
  - HYPERKALAEMIA [None]
  - PLEURISY [None]
  - MIGRAINE [None]
  - ADVERSE EVENT [None]
  - DENTAL CARIES [None]
  - DRUG INEFFECTIVE [None]
  - PHLEBOLITH [None]
  - NEPHROLITHIASIS [None]
  - NASAL ULCER [None]
  - IRREGULAR SLEEP PHASE [None]
  - MALAISE [None]
  - MENOPAUSE [None]
  - TOOTH LOSS [None]
  - BREAST DISORDER [None]
  - FATIGUE [None]
  - BACTERIAL DISEASE CARRIER [None]
  - DRUG INTOLERANCE [None]
  - EXPOSURE TO MOULD [None]
  - STRESS [None]
  - TOOTH EXTRACTION [None]
  - HYPERLIPIDAEMIA [None]
  - LUNG NEOPLASM [None]
